FAERS Safety Report 8231737-4 (Version None)
Quarter: 2012Q1

REPORT INFORMATION
  Report Type: 
  Country: None (occurrence: None)
  Receive Date: 20120321
  Receipt Date: 20120305
  Transmission Date: 20120608
  Serious: Yes (Other)
  Sender: FDA-Public Use
  Company Number: GGEL20120300211

PATIENT
  Age: 29 Year
  Sex: Female

DRUGS (3)
  1. MULTIVITAMIN B1 AND B12 (VITAMIN B1, VITAMIN B12) (TABLETS) (VITAMIN B [Concomitant]
  2. NORGESTIMATE AND ETHINYL ESTRADIOL [Suspect]
     Indication: INJECTABLE CONTRACEPTION
     Dosage: 1 PILL, 1 IN 1 D, ORAL
     Route: 048
     Dates: start: 20110301, end: 20120218
  3. ALBUTEROL (ALBUTEROL) (INHALANT) (ALBUTEROL) [Concomitant]

REACTIONS (5)
  - NAUSEA [None]
  - DYSPEPSIA [None]
  - PREGNANCY ON ORAL CONTRACEPTIVE [None]
  - DRUG INEFFECTIVE [None]
  - MATERNAL EXPOSURE DURING PREGNANCY [None]
